FAERS Safety Report 18135883 (Version 3)
Quarter: 2020Q3

REPORT INFORMATION
  Report Type: Spontaneous
  Country: SK (occurrence: SK)
  Receive Date: 20200811
  Receipt Date: 20200929
  Transmission Date: 20201103
  Serious: Yes (Congenital Anomaly, Other)
  Sender: FDA-Public Use
  Company Number: SK-VALIDUS PHARMACEUTICALS LLC-SK-2020VAL000662

PATIENT

DRUGS (9)
  1. NADROPARIN CALCIUM [Suspect]
     Active Substance: NADROPARIN CALCIUM
     Indication: PRODUCT USED FOR UNKNOWN INDICATION
     Dosage: 0.4 ML, SC FOR 24 HOURS
     Route: 064
  2. INSULIN [Suspect]
     Active Substance: INSULIN NOS
     Dosage: BOLUSES 3?4?4 U
     Route: 064
  3. ALBUMIN [Suspect]
     Active Substance: ALBUMIN HUMAN
     Indication: PRODUCT USED FOR UNKNOWN INDICATION
     Dosage: 100 ML, UNK
     Route: 064
  4. AMLODIPINE                         /00972402/ [Suspect]
     Active Substance: AMLODIPINE BESYLATE
     Indication: PRODUCT USED FOR UNKNOWN INDICATION
     Dosage: 5 MG, QD
     Route: 064
  5. EPOETIN THETA [Suspect]
     Active Substance: ERYTHROPOIETIN
     Indication: ANAEMIA
     Dosage: 2000 IU, QW
     Route: 064
  6. INSULIN [Suspect]
     Active Substance: INSULIN NOS
     Indication: PRODUCT USED FOR UNKNOWN INDICATION
     Dosage: 30.5 U
     Route: 064
  7. FUROSEMIDE. [Suspect]
     Active Substance: FUROSEMIDE
     Indication: PRODUCT USED FOR UNKNOWN INDICATION
     Dosage: 10 MG, BID
     Route: 064
  8. MAGNESIUM LACTATE [Suspect]
     Active Substance: MAGNESIUM LACTATE
     Indication: PRODUCT USED FOR UNKNOWN INDICATION
     Dosage: 500 MG, TID
     Route: 064
  9. METHYLDOPA. [Suspect]
     Active Substance: METHYLDOPA
     Indication: PRODUCT USED FOR UNKNOWN INDICATION
     Dosage: 250 MG, QID
     Route: 064

REACTIONS (7)
  - Neonatal respiratory distress syndrome [Unknown]
  - Hypophosphataemia [Unknown]
  - Hypocalcaemia [Unknown]
  - Umbilical hernia [Unknown]
  - Atrial septal defect [Unknown]
  - Bronchopulmonary dysplasia [Unknown]
  - Foetal exposure during pregnancy [Unknown]
